FAERS Safety Report 7386189-3 (Version None)
Quarter: 2011Q1

REPORT INFORMATION
  Report Type: 
  Country: None (occurrence: None)
  Receive Date: 20110323
  Receipt Date: 20110309
  Transmission Date: 20110831
  Serious: Yes (Other)
  Sender: FDA-Public Use
  Company Number: 2011SP010567

PATIENT
  Age: 41 Year
  Sex: Male

DRUGS (1)
  1. INTRON A [Suspect]
     Indication: HEPATITIS C
     Dosage: SC
     Route: 058
     Dates: start: 20100227, end: 20100801

REACTIONS (4)
  - SEXUAL DYSFUNCTION [None]
  - VITREOUS OPACITIES [None]
  - VISION BLURRED [None]
  - INSOMNIA [None]
